FAERS Safety Report 9746628 (Version 1)
Quarter: 2013Q4

REPORT INFORMATION
  Report Type: Spontaneous
  Country: US (occurrence: US)
  Receive Date: 20131211
  Receipt Date: 20131211
  Transmission Date: 20140711
  Serious: No
  Sender: FDA-Public Use
  Company Number: US-PFIZER INC-2013353772

PATIENT
  Age: 52 Year
  Sex: Female
  Weight: 58.96 kg

DRUGS (2)
  1. LYRICA [Suspect]
     Indication: PAIN
     Dosage: 75 MG, 2X/DAY
     Dates: start: 20131206
  2. IMITREX [Concomitant]
     Indication: MIGRAINE
     Dosage: 100 MG, UNK

REACTIONS (3)
  - Bradykinesia [Unknown]
  - Bradyphrenia [Unknown]
  - Dizziness [Unknown]
